FAERS Safety Report 18386761 (Version 2)
Quarter: 2020Q4

REPORT INFORMATION
  Report Type: Report from Study
  Country: FR (occurrence: FR)
  Receive Date: 20201015
  Receipt Date: 20201208
  Transmission Date: 20210114
  Serious: Yes (Hospitalization)
  Sender: FDA-Public Use
  Company Number: FR-PFIZER INC-2016-03057

PATIENT
  Age: 65 Year
  Sex: Female
  Weight: 79 kg

DRUGS (12)
  1. PEVARYL [ECONAZOLE] [Concomitant]
     Indication: FUNGAL INFECTION
     Dosage: 1 APPLICATION, 1X/DAY
     Route: 061
     Dates: start: 20150125
  2. BIOCALYPTOL [PHOLCODINE] [Concomitant]
     Active Substance: PHOLCODINE
     Indication: COUGH
     Dosage: UNK, AS NEEDED
     Route: 048
     Dates: start: 20151127
  3. ENCORAFENIB [Suspect]
     Active Substance: ENCORAFENIB
     Indication: MALIGNANT MELANOMA
     Dosage: 100 MG, 1X/DAY
     Route: 048
     Dates: start: 20150606, end: 20160120
  4. ENCORAFENIB [Suspect]
     Active Substance: ENCORAFENIB
     Dosage: 100 MG, 1X/DAY
     Route: 048
     Dates: start: 20160217
  5. HYDROCORTISONE. [Concomitant]
     Active Substance: HYDROCORTISONE
     Indication: RENAL FAILURE
     Dosage: 10 MG, 3X/DAY
     Route: 048
     Dates: start: 20120712
  6. LOPRIL [CAPTOPRIL] [Concomitant]
     Indication: PROPHYLAXIS
     Dosage: 25 MG, 1X/DAY
     Route: 048
     Dates: start: 20150914
  7. RIBOCICLIB. [Suspect]
     Active Substance: RIBOCICLIB
     Dosage: 400 MG, 1X/DAY 21/28 DAYS
     Route: 048
     Dates: start: 20160217
  8. BINIMETINIB [Suspect]
     Active Substance: BINIMETINIB
     Dosage: 30 MG, 2X/DAY
     Route: 048
     Dates: start: 20160217
  9. BINIMETINIB [Suspect]
     Active Substance: BINIMETINIB
     Indication: MALIGNANT MELANOMA
     Dosage: 30 MG, 2X/DAY
     Route: 048
     Dates: start: 20150606, end: 20160120
  10. LEVOTHYROX [Concomitant]
     Active Substance: LEVOTHYROXINE
     Indication: HYPOTHYROIDISM
     Dosage: 25 UG, 1X/DAY
     Route: 048
     Dates: start: 20120909
  11. RIBOCICLIB. [Suspect]
     Active Substance: RIBOCICLIB
     Indication: MALIGNANT MELANOMA
     Dosage: 400 MG, 1X/DAY 21/28 DAYS
     Route: 048
     Dates: start: 20150606, end: 20160113
  12. MOPRAL [OMEPRAZOLE] [Concomitant]
     Active Substance: OMEPRAZOLE
     Indication: GASTROOESOPHAGEAL REFLUX PROPHYLAXIS
     Dosage: 20 MG, 1X/DAY
     Route: 048
     Dates: start: 20151127

REACTIONS (1)
  - Renal failure [Recovered/Resolved]

NARRATIVE: CASE EVENT DATE: 20160216
